FAERS Safety Report 18635998 (Version 2)
Quarter: 2021Q1

REPORT INFORMATION
  Report Type: Spontaneous
  Country: GB (occurrence: GB)
  Receive Date: 20201218
  Receipt Date: 20210106
  Transmission Date: 20210419
  Serious: Yes (Life-Threatening, Hospitalization)
  Sender: FDA-Public Use
  Company Number: GB-TEVA-2020-GB-1861036

PATIENT
  Age: 57 Year
  Sex: Female

DRUGS (3)
  1. NALOXONE [Suspect]
     Active Substance: NALOXONE
     Indication: INTENTIONAL OVERDOSE
     Dosage: INFUSION ADMINISTERED OVER 48 HOURS
  2. MIRTAZAPINE. [Concomitant]
     Active Substance: MIRTAZAPINE
     Indication: DEPRESSION
     Route: 065
  3. OXYCODONE 10MG [Suspect]
     Active Substance: OXYCODONE
     Indication: INTENTIONAL OVERDOSE
     Dosage: TOOK 14 TABLETS
     Route: 065

REACTIONS (6)
  - Intentional overdose [Unknown]
  - Drug ineffective [Unknown]
  - Hepatic function abnormal [Unknown]
  - Renal impairment [Unknown]
  - Toxic leukoencephalopathy [Recovering/Resolving]
  - Hypoxia [Unknown]
